FAERS Safety Report 7091633-5 (Version None)
Quarter: 2010Q4

REPORT INFORMATION
  Report Type: 
  Country: None (occurrence: None)
  Receive Date: 20101101
  Receipt Date: 20101015
  Transmission Date: 20110411
  Serious: Yes (Death)
  Sender: FDA-Public Use
  Company Number: 2010004448

PATIENT
  Age: 66 Year
  Sex: Male
  Weight: 51.2565 kg

DRUGS (5)
  1. ERLOTINIB HYDROCHLORIDE [Suspect]
     Indication: LUNG NEOPLASM MALIGNANT
     Dosage: 150 MG, QD, ORAL
     Route: 048
     Dates: start: 20100319, end: 20101011
  2. PAZOPANIB/PLACEBO [Suspect]
     Indication: LUNG NEOPLASM MALIGNANT
     Dosage: 600 MG, QD
     Dates: start: 20100319, end: 20101011
  3. MUCINEX [Concomitant]
  4. LEVAQUIN [Concomitant]
  5. PREDNISONE [Concomitant]

REACTIONS (8)
  - ASTHENIA [None]
  - BLOOD POTASSIUM INCREASED [None]
  - CARDIAC ARREST [None]
  - COUGH [None]
  - DYSPEPSIA [None]
  - DYSPNOEA [None]
  - FALL [None]
  - INFLAMMATION [None]
